FAERS Safety Report 7544378-9 (Version None)
Quarter: 2011Q2

REPORT INFORMATION
  Report Type: 
  Country: None (occurrence: None)
  Receive Date: 20110613
  Receipt Date: 20080623
  Transmission Date: 20111010
  Serious: Yes (Death, Hospitalization)
  Sender: FDA-Public Use
  Company Number: PHHY2008KR02251

PATIENT
  Sex: Female

DRUGS (1)
  1. ZOMETA [Suspect]
     Indication: METASTASES TO BONE
     Dosage: 4 MG, OT
     Dates: start: 20070904

REACTIONS (3)
  - ASCITES [None]
  - LIVER DISORDER [None]
  - NEOPLASM PROGRESSION [None]
